FAERS Safety Report 7319665-X (Version None)
Quarter: 2011Q1

REPORT INFORMATION
  Report Type: 
  Country: None (occurrence: None)
  Receive Date: 20110228
  Receipt Date: 20100709
  Transmission Date: 20110831
  Serious: No
  Sender: FDA-Public Use
  Company Number: A0869512A

PATIENT
  Age: 54 Year
  Sex: Female

DRUGS (10)
  1. SYNTHROID [Concomitant]
  2. ZANAFLEX [Concomitant]
  3. XANAX [Concomitant]
  4. LAMICTAL [Suspect]
     Indication: BIPOLAR DISORDER
     Route: 048
     Dates: start: 20100101
  5. CRESTOR [Concomitant]
  6. VICODIN [Concomitant]
  7. ZOLPIDEM [Concomitant]
  8. FLUCONAZOLE [Concomitant]
  9. HYDROXYZINE HCL [Concomitant]
  10. CYMBALTA [Concomitant]

REACTIONS (5)
  - TREMOR [None]
  - AMNESIA [None]
  - COORDINATION ABNORMAL [None]
  - MYALGIA [None]
  - BALANCE DISORDER [None]
